FAERS Safety Report 7951380-1 (Version None)
Quarter: 2011Q4

REPORT INFORMATION
  Report Type: 
  Country: None (occurrence: None)
  Receive Date: 20111129
  Receipt Date: 20111117
  Transmission Date: 20120403
  Serious: Yes (Other)
  Sender: FDA-Public Use
  Company Number: 2011SP052884

PATIENT
  Age: 43 Year
  Sex: Female
  Weight: 102 kg

DRUGS (3)
  1. CLONAZEPAM [Concomitant]
  2. CERAZETTE (DESOGESTREL /00754001/) [Suspect]
     Indication: CONTRACEPTION
     Dosage: QD;PO
     Route: 048
     Dates: start: 20010101, end: 20111002
  3. FLUOXETINE [Concomitant]

REACTIONS (6)
  - MATERNAL EXPOSURE DURING PREGNANCY [None]
  - HYPOTHYROIDISM [None]
  - AMENORRHOEA [None]
  - PREGNANCY ON ORAL CONTRACEPTIVE [None]
  - CAESAREAN SECTION [None]
  - MENSTRUATION DELAYED [None]
